FAERS Safety Report 7855685-4 (Version None)
Quarter: 2011Q4

REPORT INFORMATION
  Report Type: 
  Country: None (occurrence: None)
  Receive Date: 20111026
  Receipt Date: 20111021
  Transmission Date: 20120403
  Serious: Yes (Other)
  Sender: FDA-Public Use
  Company Number: AU-ABBOTT-11P-008-0846869-00

PATIENT

DRUGS (3)
  1. HUMIRA [Suspect]
  2. BLOOD PRESSURE MEDICATION [Concomitant]
     Indication: PRODUCT USED FOR UNKNOWN INDICATION
  3. HUMIRA [Suspect]
     Indication: RHEUMATOID ARTHRITIS

REACTIONS (4)
  - VERTIGO [None]
  - DIZZINESS [None]
  - BALANCE DISORDER [None]
  - DEAFNESS [None]
